FAERS Safety Report 5963464-8 (Version None)
Quarter: 2008Q4

REPORT INFORMATION
  Report Type: 
  Country: None (occurrence: None)
  Receive Date: 20081124
  Receipt Date: 20081118
  Transmission Date: 20090506
  Serious: Yes (Other)
  Sender: FDA-Public Use
  Company Number: US-ASTRAZENECA-2008UW25822

PATIENT
  Age: 68 Year
  Sex: Male
  Weight: 87.5 kg

DRUGS (8)
  1. CRESTOR [Suspect]
     Indication: BLOOD CHOLESTEROL
     Route: 048
     Dates: start: 20040101, end: 20080901
  2. CRESTOR [Suspect]
     Route: 048
     Dates: start: 20081001
  3. FORTAMET [Concomitant]
  4. FLOMAX [Concomitant]
  5. AVADART [Concomitant]
  6. METHOTREXATE [Concomitant]
  7. FOLIC ACID [Concomitant]
  8. PREDNISONE TAB [Concomitant]

REACTIONS (3)
  - ASTHENIA [None]
  - MYALGIA [None]
  - POLYMYALGIA RHEUMATICA [None]
